FAERS Safety Report 9275928 (Version 1)
Quarter: 2013Q2

REPORT INFORMATION
  Report Type: Report from Study
  Country: US (occurrence: US)
  Receive Date: 20130507
  Receipt Date: 20130507
  Transmission Date: 20140414
  Serious: Yes (Other)
  Sender: FDA-Public Use
  Company Number: US-PFIZER INC-2013136914

PATIENT
  Age: 39 Year
  Sex: Female

DRUGS (5)
  1. CARBOPLATIN [Suspect]
     Indication: OVARIAN CANCER
     Dosage: UNK
  2. CARBOPLATIN [Suspect]
     Dosage: 2 DOSES
     Dates: start: 201005
  3. PACLITAXEL [Suspect]
     Indication: OVARIAN CANCER
     Dosage: UNK
  4. PACLITAXEL [Suspect]
     Dosage: WEEKLY
  5. LIPOSOMAL FORMULATION OF DOXORUBICIN [Suspect]
     Indication: OVARIAN CANCER RECURRENT
     Dosage: CUMULATIVE DOSE OF 1.445 MG/M2
     Dates: start: 200609, end: 201001

REACTIONS (2)
  - Thrombotic microangiopathy [Unknown]
  - Renal failure chronic [Recovering/Resolving]
